FAERS Safety Report 5116008-7 (Version None)
Quarter: 2006Q3

REPORT INFORMATION
  Report Type: 
  Country: None (occurrence: None)
  Receive Date: 20060927
  Receipt Date: 20060209
  Transmission Date: 20061208
  Serious: No
  Sender: FDA-Public Use
  Company Number: US-BRISTOL-MYERS SQUIBB COMPANY-13278809

PATIENT
  Age: 58 Year
  Sex: Female

DRUGS (2)
  1. DEFINITY [Suspect]
     Route: 040
     Dates: start: 20060209
  2. SALINE [Concomitant]
     Route: 040
     Dates: start: 20060209

REACTIONS (5)
  - BACK PAIN [None]
  - DYSPNOEA [None]
  - HEADACHE [None]
  - HYPERTENSION [None]
  - PALPITATIONS [None]
